FAERS Safety Report 5666293-8 (Version None)
Quarter: 2008Q1

REPORT INFORMATION
  Report Type: 
  Country: None (occurrence: None)
  Receive Date: 20080314
  Receipt Date: 20071213
  Transmission Date: 20080703
  Serious: No
  Sender: FDA-Public Use
  Company Number: US-ABBOTT-07P-163-0430286-00

PATIENT
  Sex: Male
  Weight: 61.744 kg

DRUGS (4)
  1. HUMIRA [Suspect]
     Indication: CROHN'S DISEASE
     Route: 058
     Dates: start: 20070614
  2. HUMIRA [Suspect]
  3. PREDNISONE [Suspect]
     Indication: DRUG USE FOR UNKNOWN INDICATION
  4. ALPRAZOLAM [Concomitant]
     Indication: PANIC DISORDER
     Route: 048

REACTIONS (6)
  - CROHN'S DISEASE [None]
  - DIARRHOEA [None]
  - MUSCLE SPASMS [None]
  - PAIN [None]
  - URINARY INCONTINENCE [None]
  - WEIGHT DECREASED [None]
